FAERS Safety Report 10410252 (Version 1)
Quarter: 2014Q3

REPORT INFORMATION
  Report Type: Spontaneous
  Country: GB (occurrence: GB)
  Receive Date: 20140826
  Receipt Date: 20140826
  Transmission Date: 20150326
  Serious: No
  Sender: FDA-Public Use
  Company Number: GB-009507513-1408GBR010262

PATIENT
  Age: 20 Year
  Sex: Female
  Weight: 36 kg

DRUGS (6)
  1. SEVOFLURANE. [Concomitant]
     Active Substance: SEVOFLURANE
  2. ROCURONIUM BROMIDE. [Suspect]
     Active Substance: ROCURONIUM BROMIDE
     Dosage: 40 MG, UNK
  3. THIOPENTAL SODIUM. [Concomitant]
     Active Substance: THIOPENTAL SODIUM
     Dosage: 275 MG, UNK
  4. ELECTROLYTES (UNSPECIFIED) (+) SODIUM LACTATE [Concomitant]
  5. REMIFENTANIL HYDROCHLORIDE [Concomitant]
     Active Substance: REMIFENTANIL HYDROCHLORIDE
     Indication: SEDATION
     Dosage: 1NG/ML
  6. REMIFENTANIL HYDROCHLORIDE [Concomitant]
     Active Substance: REMIFENTANIL HYDROCHLORIDE
     Indication: TACHYCARDIA
     Dosage: 1-3NG/ML

REACTIONS (1)
  - Maternal exposure during pregnancy [Recovered/Resolved]
